FAERS Safety Report 6408126-8 (Version None)
Quarter: 2009Q4

REPORT INFORMATION
  Report Type: 
  Country: None (occurrence: None)
  Receive Date: 20091021
  Receipt Date: 20091009
  Transmission Date: 20100525
  Serious: Yes (Hospitalization)
  Sender: FDA-Public Use
  Company Number: JP-JNJFOC-20090604611

PATIENT
  Sex: Female

DRUGS (33)
  1. BLINDED; GOLIMUMA [Suspect]
     Route: 058
  2. BLINDED; GOLIMUMA [Suspect]
     Route: 058
  3. BLINDED; GOLIMUMA [Suspect]
     Route: 058
  4. BLINDED; GOLIMUMA [Suspect]
     Route: 058
  5. BLINDED; GOLIMUMA [Suspect]
     Route: 058
  6. BLINDED; GOLIMUMA [Suspect]
     Route: 058
  7. BLINDED; GOLIMUMA [Suspect]
     Route: 058
  8. BLINDED; GOLIMUMA [Suspect]
     Route: 058
  9. BLINDED; GOLIMUMA [Suspect]
     Route: 058
  10. BLINDED; GOLIMUMA [Suspect]
     Indication: RHEUMATOID ARTHRITIS
     Route: 058
  11. PLACEBO [Suspect]
     Route: 058
  12. PLACEBO [Suspect]
     Route: 058
  13. PLACEBO [Suspect]
     Route: 058
  14. PLACEBO [Suspect]
     Route: 058
  15. PLACEBO [Suspect]
     Route: 058
  16. PLACEBO [Suspect]
     Route: 058
  17. PLACEBO [Suspect]
     Route: 058
  18. PLACEBO [Suspect]
     Route: 058
  19. PLACEBO [Suspect]
     Route: 058
  20. PLACEBO [Suspect]
     Indication: RHEUMATOID ARTHRITIS
     Route: 058
  21. DEPAS [Concomitant]
     Indication: SLEEP DISORDER
     Route: 048
  22. PREDNISONE TAB [Concomitant]
     Route: 048
  23. PREDNISONE TAB [Concomitant]
     Indication: RHEUMATOID ARTHRITIS
     Route: 048
  24. SELTOUCH [Concomitant]
     Indication: RHEUMATOID ARTHRITIS
     Route: 062
  25. DICLOFENAC SODIUM [Concomitant]
     Indication: RHEUMATOID ARTHRITIS
     Route: 048
  26. TAKEPRON [Concomitant]
     Indication: GASTRITIS PROPHYLAXIS
     Route: 048
  27. VOLTAREN [Concomitant]
     Indication: RHEUMATOID ARTHRITIS
     Route: 062
  28. MYSLEE [Concomitant]
     Indication: SLEEP DISORDER
     Route: 048
  29. GASMOTIN [Concomitant]
     Indication: REFLUX LARYNGITIS
     Route: 048
  30. CRAVIT [Concomitant]
     Indication: CONJUNCTIVAL HYPERAEMIA
     Route: 047
  31. FLUMETHOLON [Concomitant]
     Indication: CONJUNCTIVAL HYPERAEMIA
     Route: 048
  32. FAROM [Concomitant]
     Indication: CELLULITIS
     Route: 048
  33. ETANERCEPT [Concomitant]

REACTIONS (3)
  - CELLULITIS [None]
  - GLAUCOMA [None]
  - RHEUMATOID ARTHRITIS [None]
